FAERS Safety Report 14314187 (Version 2)
Quarter: 2018Q1

REPORT INFORMATION
  Report Type: Report from Study
  Country: FR (occurrence: FR)
  Receive Date: 20171221
  Receipt Date: 20180215
  Transmission Date: 20180509
  Serious: Yes (Death, Other)
  Sender: FDA-Public Use
  Company Number: FR-AUROBINDO-AUR-APL-2017-45951

PATIENT
  Age: 59 Year
  Sex: Male

DRUGS (1)
  1. AZITHROMYCIN ARROW [Suspect]
     Active Substance: AZITHROMYCIN ANHYDROUS
     Indication: OBLITERATIVE BRONCHIOLITIS
     Dosage: 250 MG, 3 TIMES A WEEK
     Route: 048
     Dates: start: 20150522

REACTIONS (3)
  - Septic shock [Fatal]
  - Leukaemia recurrent [Fatal]
  - Febrile neutropenia [Fatal]

NARRATIVE: CASE EVENT DATE: 20160603
